FAERS Safety Report 4322602-3 (Version None)
Quarter: 2004Q1

REPORT INFORMATION
  Report Type: 
  Country: None (occurrence: None)
  Receive Date: 20040319
  Receipt Date: 20040315
  Transmission Date: 20041129
  Serious: Yes (Disabling)
  Sender: FDA-Public Use
  Company Number: 200410148BNE

PATIENT
  Age: 59 Year
  Sex: Female

DRUGS (4)
  1. NIMODIPINE [Suspect]
     Indication: AFFECTIVE DISORDER
     Dosage: 30 MG, TID, ORAL
     Route: 048
  2. LITHIUM [Concomitant]
  3. GABAPENTIN [Concomitant]
  4. TRANYLCYPROMINE [Concomitant]

REACTIONS (2)
  - CORNEAL ABRASION [None]
  - KERATOCONJUNCTIVITIS SICCA [None]
